FAERS Safety Report 22165438 (Version 1)
Quarter: 2023Q2

REPORT INFORMATION
  Report Type: Spontaneous
  Country: FR (occurrence: FR)
  Receive Date: 20230403
  Receipt Date: 20230403
  Transmission Date: 20230721
  Serious: Yes (Hospitalization, Disabling, Other)
  Sender: FDA-Public Use
  Company Number: FR-SA-SAC20210713000595

PATIENT
  Age: 56 Year
  Sex: Male
  Weight: 84 kg

DRUGS (26)
  1. METHOTREXATE [Suspect]
     Active Substance: METHOTREXATE
     Indication: Product used for unknown indication
     Dosage: 15 MG, QW
     Route: 058
  2. HYDROCORTISONE [Suspect]
     Active Substance: HYDROCORTISONE
     Indication: Adrenal insufficiency
     Dosage: 15 MG IN MOR, 5 MG AT NOON
     Route: 065
  3. PREDNISONE [Suspect]
     Active Substance: PREDNISONE
     Indication: Product used for unknown indication
     Dosage: 10 MG, QD
     Route: 065
  4. PREDNISONE [Suspect]
     Active Substance: PREDNISONE
     Dosage: 7.5 MG, QD
     Route: 065
  5. PREDNISONE [Suspect]
     Active Substance: PREDNISONE
     Dosage: 5 MG, QD
     Route: 065
  6. PREDNISONE [Suspect]
     Active Substance: PREDNISONE
     Dosage: 17.5 MG, QD
     Route: 065
  7. PREDNISONE [Suspect]
     Active Substance: PREDNISONE
     Dosage: 40 MG, QD
     Route: 065
     Dates: start: 20190411
  8. OMEPRAZOLE [Concomitant]
     Active Substance: OMEPRAZOLE
     Dosage: UNK
     Route: 065
  9. AGOMELATINE [Concomitant]
     Active Substance: AGOMELATINE
     Dosage: UNK
     Route: 065
  10. Lamaline [Concomitant]
     Dosage: UNK
     Route: 065
  11. ALPRAZOLAM [Concomitant]
     Active Substance: ALPRAZOLAM
     Indication: Generalised tonic-clonic seizure
     Dosage: 1/2 - 1/2 - 1/2 AND 2 IN THE EVENING)
     Route: 065
  12. ALPRAZOLAM [Concomitant]
     Active Substance: ALPRAZOLAM
     Dosage: 25 (1 MOR, 1 NOON,2 NIGHT
     Route: 065
  13. ALPRAZOLAM [Concomitant]
     Active Substance: ALPRAZOLAM
     Dosage: 0.25 (1 MORN, 1 NOON, 2 EVENING
     Route: 065
  14. ALPRAZOLAM [Concomitant]
     Active Substance: ALPRAZOLAM
     Dosage: UNK UNK, Q8H
     Route: 065
  15. ALPRAZOLAM [Concomitant]
     Active Substance: ALPRAZOLAM
     Dosage: UNK UNK, Q8H,1-1-1
     Route: 065
  16. APIXABAN [Concomitant]
     Active Substance: APIXABAN
     Dosage: UNK
     Route: 065
  17. LEVETIRACETAM [Concomitant]
     Active Substance: LEVETIRACETAM
     Dosage: UNK
     Route: 065
  18. REVAXIS [Concomitant]
     Active Substance: DIPHTHERIA AND TETANUS TOXOIDS AND POLIOVIRUS VACCINE ANTIGENS
     Indication: Immunisation
     Dosage: UNK
     Route: 065
     Dates: start: 20140421
  19. REVAXIS [Concomitant]
     Active Substance: DIPHTHERIA AND TETANUS TOXOIDS AND POLIOVIRUS VACCINE ANTIGENS
     Indication: Tetanus immunisation
     Dosage: UNK
     Route: 065
     Dates: start: 2002
  20. REVAXIS [Concomitant]
     Active Substance: DIPHTHERIA AND TETANUS TOXOIDS AND POLIOVIRUS VACCINE ANTIGENS
     Indication: Immunisation
  21. CHOLECALCIFEROL [Concomitant]
     Active Substance: CHOLECALCIFEROL
     Dosage: UNK
     Route: 065
  22. PRAMIPEXOLE [Concomitant]
     Active Substance: PRAMIPEXOLE
     Dosage: UNK
     Route: 065
  23. PREDNISONE [Concomitant]
     Active Substance: PREDNISONE
     Dosage: 40 MG, QD
     Route: 065
  24. DULOXETINE [Concomitant]
     Active Substance: DULOXETINE
     Dosage: UNK
     Route: 065
  25. LEVOCARNITINE [Concomitant]
     Active Substance: LEVOCARNITINE
     Dosage: UNK
     Route: 065
  26. FLUDROCORTISONE [Concomitant]
     Active Substance: FLUDROCORTISONE
     Dosage: UNK
     Route: 065

REACTIONS (46)
  - Burnout syndrome [Unknown]
  - Fibromyalgia [Unknown]
  - Lymphocytic infiltration [Unknown]
  - Pyrexia [Unknown]
  - Restless legs syndrome [Unknown]
  - Migraine [Unknown]
  - Dry eye [Unknown]
  - Back pain [Unknown]
  - Sensory loss [Unknown]
  - Burning sensation [Unknown]
  - Dysglobulinaemia [Unknown]
  - Photophobia [Unknown]
  - Influenza like illness [Unknown]
  - Sleep disorder [Unknown]
  - Myofascitis [Unknown]
  - Small fibre neuropathy [Unknown]
  - Chest pain [Recovered/Resolved]
  - Weight increased [Unknown]
  - Memory impairment [Unknown]
  - Chronic fatigue syndrome [Unknown]
  - Insomnia [Recovering/Resolving]
  - Dyskinesia [Unknown]
  - Loss of personal independence in daily activities [Recovering/Resolving]
  - Pain in extremity [Recovering/Resolving]
  - Adrenal insufficiency [Unknown]
  - Neuralgia [Unknown]
  - Musculoskeletal stiffness [Unknown]
  - Dry mouth [Unknown]
  - Psychomotor hyperactivity [Unknown]
  - Hypoaesthesia [Unknown]
  - Headache [Unknown]
  - Paraesthesia [Unknown]
  - Myalgia [Unknown]
  - Arthralgia [Unknown]
  - Cough [Unknown]
  - Fatigue [Unknown]
  - Asthenia [Unknown]
  - Vomiting [Unknown]
  - Steroid dependence [Unknown]
  - Mental disorder [Unknown]
  - Disturbance in attention [Unknown]
  - Poor quality sleep [Unknown]
  - Frustration tolerance decreased [Unknown]
  - Personality change [Unknown]
  - Myositis [Unknown]
  - Ocular discomfort [Unknown]
